FAERS Safety Report 15116779 (Version 1)
Quarter: 2018Q3

REPORT INFORMATION
  Report Type: Spontaneous
  Country: US (occurrence: US)
  Receive Date: 20180706
  Receipt Date: 20180706
  Transmission Date: 20181010
  Serious: No
  Sender: FDA-Public Use
  Company Number: US-BEH-2018092455

PATIENT
  Sex: Female
  Weight: 97.51 kg

DRUGS (23)
  1. CYMBALTA [Concomitant]
     Active Substance: DULOXETINE HYDROCHLORIDE
  2. ACETAMINOPHEN. [Concomitant]
     Active Substance: ACETAMINOPHEN
  3. DILTIAZEM. [Concomitant]
     Active Substance: DILTIAZEM
  4. PRIVIGEN [Suspect]
     Active Substance: HUMAN IMMUNOGLOBULIN G
     Indication: HYPOGAMMAGLOBULINAEMIA
     Dosage: 20 G, QMT
     Route: 042
     Dates: start: 20180402
  5. ERYTHROMYCIN. [Concomitant]
     Active Substance: ERYTHROMYCIN
  6. PREDNISONE. [Concomitant]
     Active Substance: PREDNISONE
  7. RANITIDINE. [Concomitant]
     Active Substance: RANITIDINE
  8. DIPHENHYDRAMINE. [Concomitant]
     Active Substance: DIPHENHYDRAMINE
  9. HEPARIN [Concomitant]
     Active Substance: HEPARIN SODIUM
  10. HUMIRA [Concomitant]
     Active Substance: ADALIMUMAB
  11. ESTRADIOL. [Concomitant]
     Active Substance: ESTRADIOL
  12. SODIUM CHLORIDE. [Concomitant]
     Active Substance: SODIUM CHLORIDE
  13. NEXIUM [Concomitant]
     Active Substance: ESOMEPRAZOLE MAGNESIUM
  14. VITAMIN D                          /00107901/ [Concomitant]
     Active Substance: ERGOCALCIFEROL
  15. EPINEPHRINE. [Concomitant]
     Active Substance: EPINEPHRINE
  16. LOVASTATIN. [Concomitant]
     Active Substance: LOVASTATIN
  17. HYDROCODONE BITARTRATE AND ACETAMINOPHEN [Concomitant]
     Active Substance: ACETAMINOPHEN\HYDROCODONE BITARTRATE
  18. FLONASE [Concomitant]
     Active Substance: FLUTICASONE PROPIONATE
  19. ADVAIR HFA [Concomitant]
     Active Substance: FLUTICASONE PROPIONATE\SALMETEROL XINAFOATE
  20. LORAZEPAM. [Concomitant]
     Active Substance: LORAZEPAM
  21. MONTELUKAST [Concomitant]
     Active Substance: MONTELUKAST SODIUM
  22. FEXOFENADINE [Concomitant]
     Active Substance: FEXOFENADINE\FEXOFENADINE HYDROCHLORIDE
  23. ZYRTEC [Concomitant]
     Active Substance: CETIRIZINE HYDROCHLORIDE

REACTIONS (3)
  - Arthralgia [Unknown]
  - Insomnia [Unknown]
  - Fatigue [Unknown]
